FAERS Safety Report 4316831-2 (Version None)
Quarter: 2004Q1

REPORT INFORMATION
  Report Type: 
  Country: None (occurrence: None)
  Receive Date: 20040311
  Receipt Date: 20040226
  Transmission Date: 20041129
  Serious: Yes (Other)
  Sender: FDA-Public Use
  Company Number: ENT 2004-0035

PATIENT
  Age: 78 Year
  Sex: Female

DRUGS (3)
  1. COMTAN (COMTESS) (TABLET)   (ENTACAPONE) [Suspect]
     Indication: PARKINSON'S DISEASE
     Dosage: 200 MG QD, ORAL
     Route: 048
     Dates: start: 20040217
  2. SINEMET [Concomitant]
  3. CLONAZEPAM [Concomitant]

REACTIONS (5)
  - CONDITION AGGRAVATED [None]
  - FEELING HOT [None]
  - HYPERHIDROSIS [None]
  - LOSS OF CONSCIOUSNESS [None]
  - TREMOR [None]
